FAERS Safety Report 13904874 (Version 1)
Quarter: 2017Q3

REPORT INFORMATION
  Report Type: Spontaneous
  Country: US (occurrence: US)
  Receive Date: 20170825
  Receipt Date: 20170825
  Transmission Date: 20171127
  Serious: No
  Sender: FDA-Public Use
  Company Number: GXBR2017US001385

PATIENT
  Sex: Male
  Weight: 77.98 kg

DRUGS (1)
  1. BUPROPION HCI TABLETS EXTENDED-RELEASE [Suspect]
     Active Substance: BUPROPION HYDROCHLORIDE
     Indication: ANXIETY
     Dosage: 1 DF, BID
     Route: 065

REACTIONS (2)
  - Choking sensation [Not Recovered/Not Resolved]
  - Product use complaint [Unknown]
